FAERS Safety Report 21003842 (Version 5)
Quarter: 2022Q4

REPORT INFORMATION
  Report Type: Spontaneous
  Country: US (occurrence: US)
  Receive Date: 20220624
  Receipt Date: 20221007
  Transmission Date: 20230113
  Serious: Yes (Other)
  Sender: FDA-Public Use
  Company Number: US-BRISTOL-MYERS SQUIBB COMPANY-2022-057427

PATIENT
  Age: 67 Year
  Sex: Male

DRUGS (2)
  1. REVLIMID [Suspect]
     Active Substance: LENALIDOMIDE
     Indication: Plasma cell myeloma
     Dosage: 1 CAPSULE EVERY DAY FOR 14 DAYS ON AND 7 DAYS OFF EVERY 21 DAYS
     Route: 048
     Dates: start: 20220106
  2. REVLIMID [Suspect]
     Active Substance: LENALIDOMIDE
     Dosage: TAKE 1 CAPSULE BY MOUTH EVERY DAY FOR 14 DAYS, THEN OFF FOR 7 DAYS OF EACH 21 DAY CYCLE?BATCH NUMBER
     Route: 048
     Dates: start: 20220531

REACTIONS (12)
  - COVID-19 [Unknown]
  - Sinus disorder [Unknown]
  - Deafness [Unknown]
  - Condition aggravated [Unknown]
  - Musculoskeletal chest pain [Not Recovered/Not Resolved]
  - Dry skin [Unknown]
  - Pruritus [Unknown]
  - Arthralgia [Unknown]
  - Nausea [Unknown]
  - Off label use [Unknown]
  - Sensitive skin [Unknown]
  - Irritability [Unknown]
